FAERS Safety Report 10058071 (Version 1)
Quarter: 2014Q2

REPORT INFORMATION
  Report Type: Spontaneous
  Country: US (occurrence: None)
  Receive Date: 20140403
  Receipt Date: 20140403
  Transmission Date: 20141212
  Serious: Yes (Hospitalization)
  Sender: FDA-Public Use
  Company Number: None

PATIENT
  Age: 36 Year
  Sex: Female

DRUGS (1)
  1. PROGESTERONE [Suspect]
     Indication: INFERTILITY
     Route: 030
     Dates: start: 20140315, end: 20140331

REACTIONS (1)
  - Hypersensitivity [None]
